FAERS Safety Report 5553826-5 (Version None)
Quarter: 2007Q4

REPORT INFORMATION
  Report Type: 
  Country: None (occurrence: None)
  Receive Date: 20071213
  Receipt Date: 20071204
  Transmission Date: 20080405
  Serious: Yes (Hospitalization)
  Sender: FDA-Public Use
  Company Number: US-ELI_LILLY_AND_COMPANY-US200712000378

PATIENT
  Sex: Female

DRUGS (6)
  1. HUMALOG MIX 75/25 [Suspect]
     Dosage: UNK, UNK
     Dates: start: 20071001
  2. HUMALOG [Suspect]
     Dates: end: 20071001
  3. NORVASC [Concomitant]
  4. ASPIRIN [Concomitant]
  5. PEPCID [Concomitant]
  6. HYDROCHLORZIDE [Concomitant]

REACTIONS (3)
  - EYE DISORDER [None]
  - MYOCARDIAL INFARCTION [None]
  - VISUAL ACUITY REDUCED [None]
